FAERS Safety Report 7733783-3 (Version None)
Quarter: 2011Q3

REPORT INFORMATION
  Report Type: 
  Country: None (occurrence: None)
  Receive Date: 20110907
  Receipt Date: 20110901
  Transmission Date: 20111222
  Serious: Yes (Other)
  Sender: FDA-Public Use
  Company Number: PHHY2010US29149

PATIENT
  Sex: Female

DRUGS (2)
  1. EXJADE [Suspect]
     Dosage: 2500 MG, QD
     Route: 048
  2. EXJADE [Suspect]
     Dosage: 2000 MG, QD
     Route: 048

REACTIONS (1)
  - VISUAL IMPAIRMENT [None]
